FAERS Safety Report 7065564-0 (Version None)
Quarter: 2010Q4

REPORT INFORMATION
  Report Type: 
  Country: None (occurrence: None)
  Receive Date: 20101027
  Receipt Date: 20101018
  Transmission Date: 20110411
  Serious: Yes (Other)
  Sender: FDA-Public Use
  Company Number: IR-ROCHE-735284

PATIENT
  Age: 55 Year
  Sex: Female

DRUGS (2)
  1. PEGINTERFERON ALFA-2A [Suspect]
     Route: 030
  2. RIBAVIRIN [Suspect]
     Route: 065

REACTIONS (1)
  - DEAFNESS NEUROSENSORY [None]
